FAERS Safety Report 6713824-2 (Version None)
Quarter: 2010Q2

REPORT INFORMATION
  Report Type: 
  Country: None (occurrence: None)
  Receive Date: 20100506
  Receipt Date: 20100427
  Transmission Date: 20101027
  Serious: Yes (Hospitalization)
  Sender: FDA-Public Use
  Company Number: JP-PFIZER INC-2010043313

PATIENT
  Age: 61 Year
  Sex: Male
  Weight: 51 kg

DRUGS (3)
  1. SUNITINIB MALATE [Suspect]
     Indication: RENAL CELL CARCINOMA
     Dosage: 50 MG, 1X/DAY
     Route: 048
     Dates: start: 20091113
  2. NEOPHAGEN [Concomitant]
     Route: 042
     Dates: start: 20091127, end: 20091205
  3. GLYCEOL [Concomitant]
     Route: 042
     Dates: start: 20091127, end: 20091129

REACTIONS (2)
  - RENAL IMPAIRMENT [None]
  - WHITE BLOOD CELL COUNT DECREASED [None]
